FAERS Safety Report 8079828-5 (Version None)
Quarter: 2012Q1

REPORT INFORMATION
  Report Type: 
  Country: None (occurrence: None)
  Receive Date: 20120128
  Receipt Date: 20110830
  Transmission Date: 20120608
  Serious: No
  Sender: FDA-Public Use
  Company Number: US-ABBOTT-11P-163-0850668-00

PATIENT
  Sex: Male

DRUGS (3)
  1. METHOTREXATE [Concomitant]
     Indication: PRODUCT USED FOR UNKNOWN INDICATION
  2. METHOTREXATE [Concomitant]
  3. HUMIRA [Suspect]
     Indication: RHEUMATOID ARTHRITIS
     Dosage: RX: EOW, BUT USING MD SAMPLES 1-IN1 WEEK
     Dates: start: 20110301

REACTIONS (6)
  - BACK PAIN [None]
  - FATIGUE [None]
  - ARTHRALGIA [None]
  - DRUG EFFECT DECREASED [None]
  - MUSCULOSKELETAL STIFFNESS [None]
  - JOINT SWELLING [None]
